FAERS Safety Report 25471292 (Version 2)
Quarter: 2025Q3

REPORT INFORMATION
  Report Type: Spontaneous
  Country: EU (occurrence: EU)
  Receive Date: 20250624
  Receipt Date: 20250731
  Transmission Date: 20251020
  Serious: Yes (Death)
  Sender: CELLTRION
  Company Number: EU-CELLTRION INC.-2025IE019786

PATIENT

DRUGS (1)
  1. YUFLYMA [Suspect]
     Active Substance: ADALIMUMAB-AATY
     Indication: Product used for unknown indication
     Route: 058

REACTIONS (1)
  - Death [Fatal]

NARRATIVE: CASE EVENT DATE: 20250616
